FAERS Safety Report 17479526 (Version 1)
Quarter: 2020Q1

REPORT INFORMATION
  Report Type: Spontaneous
  Country: AU (occurrence: AU)
  Receive Date: 20200228
  Receipt Date: 20200228
  Transmission Date: 20200409
  Serious: Yes (Hospitalization)
  Sender: FDA-Public Use
  Company Number: NVSC2020AU044774

PATIENT
  Age: 43 Year
  Sex: Female

DRUGS (5)
  1. PREDNISONE. [Suspect]
     Active Substance: PREDNISONE
     Indication: PRODUCT USED FOR UNKNOWN INDICATION
     Dosage: UNK
     Route: 065
  2. HYSONE (CLIOQUINOL\HYDROCORTISONE) [Suspect]
     Active Substance: CLIOQUINOL\HYDROCORTISONE
     Indication: PRODUCT USED FOR UNKNOWN INDICATION
     Dosage: UNK(LOW DOSE HYSONE)
     Route: 065
  3. MYCOPHENOLATE MOFETIL. [Suspect]
     Active Substance: MYCOPHENOLATE MOFETIL
     Indication: PRODUCT USED FOR UNKNOWN INDICATION
     Dosage: UNK
     Route: 065
     Dates: start: 201810
  4. REVOLADE [Suspect]
     Active Substance: ELTROMBOPAG
     Indication: IMMUNE THROMBOCYTOPENIC PURPURA
     Dosage: THERE WAS CONTINUED INCREASE AND DECREASE OF DOSAGE
     Route: 065
     Dates: start: 201508
  5. RITUXIMAB. [Suspect]
     Active Substance: RITUXIMAB
     Dosage: UNK (4 ROUNDS)
     Route: 065

REACTIONS (13)
  - Menstrual disorder [Unknown]
  - Depression [Unknown]
  - Haemorrhage [Unknown]
  - Stress [Unknown]
  - Injury [Unknown]
  - Quality of life decreased [Unknown]
  - Pain [Unknown]
  - Herpes zoster [Unknown]
  - Portal vein thrombosis [Unknown]
  - Drug ineffective [Unknown]
  - Platelet count abnormal [Unknown]
  - Sleep disorder [Unknown]
  - Weight increased [Unknown]

NARRATIVE: CASE EVENT DATE: 201812
